FAERS Safety Report 25508881 (Version 1)
Quarter: 2025Q3

REPORT INFORMATION
  Report Type: Spontaneous
  Country: US (occurrence: US)
  Receive Date: 20250703
  Receipt Date: 20250703
  Transmission Date: 20251020
  Serious: Yes (Disabling)
  Sender: SANDOZ
  Company Number: US-SANDOZ-SDZ2025US045547

PATIENT
  Age: 48 Year
  Sex: Female
  Weight: 68.03 kg

DRUGS (2)
  1. ESTRADIOL [Suspect]
     Active Substance: ESTRADIOL
     Dosage: 0.075 MG, QD
     Route: 062
     Dates: start: 20250505
  2. ESTRADIOL [Suspect]
     Active Substance: ESTRADIOL
     Indication: Menopause
     Dosage: 0.075MG/24H 8TT
     Route: 062
     Dates: start: 20250505

REACTIONS (2)
  - Fatigue [Not Recovered/Not Resolved]
  - Drug ineffective [Unknown]

NARRATIVE: CASE EVENT DATE: 20250525
